FAERS Safety Report 20260871 (Version 1)
Quarter: 2021Q4

REPORT INFORMATION
  Report Type: Report from Study
  Country: US (occurrence: US)
  Receive Date: 20211230
  Receipt Date: 20211230
  Transmission Date: 20220303
  Serious: No
  Sender: FDA-Public Use
  Company Number: US-BIOVITRUM-2021US12475

PATIENT
  Sex: Female

DRUGS (1)
  1. KINERET [Suspect]
     Active Substance: ANAKINRA
     Indication: Rheumatoid arthritis
     Route: 058
     Dates: start: 202112

REACTIONS (6)
  - Skin swelling [Unknown]
  - Erythema [Unknown]
  - Pruritus [Unknown]
  - Injection site reaction [Unknown]
  - Rash [Unknown]
  - Hypersensitivity [Unknown]
